FAERS Safety Report 9459422 (Version 1)
Quarter: 2013Q3

REPORT INFORMATION
  Report Type: Spontaneous
  Country: FR (occurrence: FR)
  Receive Date: 20130815
  Receipt Date: 20130815
  Transmission Date: 20140515
  Serious: Yes (Hospitalization)
  Sender: FDA-Public Use
  Company Number: FR-ABBOTT-13X-056-1133117-00

PATIENT
  Age: 38 Year
  Sex: Male

DRUGS (1)
  1. DEPAKOTE [Suspect]
     Indication: PRODUCT USED FOR UNKNOWN INDICATION
     Route: 048
     Dates: start: 2009, end: 20130706

REACTIONS (3)
  - Muscle contracture [Unknown]
  - Dystonia [Recovered/Resolved]
  - Myalgia [Unknown]
